FAERS Safety Report 6149615-3 (Version None)
Quarter: 2009Q2

REPORT INFORMATION
  Report Type: 
  Country: None (occurrence: None)
  Receive Date: 20090409
  Receipt Date: 20090402
  Transmission Date: 20091009
  Serious: Yes (Other)
  Sender: FDA-Public Use
  Company Number: US-NOVOPROD-285923

PATIENT
  Sex: Female
  Weight: 77.098 kg

DRUGS (17)
  1. ACTIVELLA [Suspect]
     Indication: HORMONE REPLACEMENT THERAPY
     Dosage: 1 MG/0.5MG
     Route: 048
     Dates: start: 20030101
  2. PREMARIN [Suspect]
     Indication: HORMONE REPLACEMENT THERAPY
     Dosage: UNK, UNK
     Dates: end: 19970101
  3. PREMARIN [Suspect]
     Dosage: 1.25 MG
     Dates: start: 20000201, end: 20000701
  4. PROVERA [Suspect]
     Indication: HORMONE REPLACEMENT THERAPY
     Dosage: UNK, UNK
     Dates: end: 19970101
  5. PROVERA [Suspect]
     Dosage: 2.5 MG
     Dates: start: 20000201, end: 20000701
  6. PREMPRO [Suspect]
     Indication: HORMONE REPLACEMENT THERAPY
     Dosage: .625/2.5 MG
     Dates: start: 19970101, end: 20000201
  7. PREMPRO [Suspect]
     Dosage: .625/2.5 MG
     Dates: start: 20000701, end: 20000901
  8. FEMHRT [Suspect]
     Indication: HORMONE REPLACEMENT THERAPY
     Dosage: 1 MG/5MCG
     Dates: start: 20020901, end: 20030101
  9. GLUCOPHAGE [Concomitant]
     Indication: DIABETES MELLITUS
     Route: 048
     Dates: start: 20010101
  10. ACTOS [Concomitant]
     Indication: DIABETES MELLITUS
     Route: 048
     Dates: start: 20010101
  11. LASIX [Concomitant]
     Indication: FLUID RETENTION
  12. NEURONTIN [Concomitant]
     Indication: NEURALGIA
  13. NAPROXEN                           /00256202/ [Concomitant]
     Indication: PAIN
     Dosage: 7.5 MG, TID
  14. AVAPRO [Concomitant]
     Indication: HYPERTENSION
     Dosage: 150 MG, QD
  15. VERAPAMIL [Concomitant]
     Indication: ANGINA PECTORIS
     Dosage: 80 MG, TID
  16. FOSAMAX [Concomitant]
     Indication: OSTEOPOROSIS
     Dosage: UNK, QW
     Dates: start: 20080101
  17. CONTRACEPTIVES NOS [Concomitant]
     Route: 048
     Dates: start: 19670101, end: 19790101

REACTIONS (1)
  - BENIGN BREAST NEOPLASM [None]
